FAERS Safety Report 5420738-7 (Version None)
Quarter: 2007Q3

REPORT INFORMATION
  Report Type: 
  Country: None (occurrence: None)
  Receive Date: 20070816
  Receipt Date: 20070809
  Transmission Date: 20080115
  Serious: Yes (Hospitalization, Other)
  Sender: FDA-Public Use
  Company Number: 2007SP003066

PATIENT
  Age: 60 Year
  Sex: Female
  Weight: 50 kg

DRUGS (7)
  1. TEMODAL [Suspect]
     Indication: GLIOBLASTOMA MULTIFORME
     Dosage: 150 MG/M2; QD; PO
     Route: 048
     Dates: start: 20070115, end: 20070119
  2. RADIOTHERAPY [Concomitant]
  3. NIMUSTINE HYDROCHLORIDE [Concomitant]
  4. PROCARBAZINE [Concomitant]
  5. SELENICA-R [Concomitant]
  6. TAKEPRON OD [Concomitant]
  7. PURSENNID [Concomitant]

REACTIONS (3)
  - ALTERED STATE OF CONSCIOUSNESS [None]
  - PLATELET COUNT DECREASED [None]
  - TUMOUR HAEMORRHAGE [None]
